FAERS Safety Report 7455375-6 (Version None)
Quarter: 2011Q2

REPORT INFORMATION
  Report Type: 
  Country: None (occurrence: None)
  Receive Date: 20110503
  Receipt Date: 20100621
  Transmission Date: 20111010
  Serious: No
  Sender: FDA-Public Use
  Company Number: US-TYCO HEALTHCARE/MALLINCKRODT-T201001490

PATIENT
  Sex: Female
  Weight: 52.154 kg

DRUGS (2)
  1. ACETAMINOPHEN AND HYDROCODONE BITARTRATE [Suspect]
     Indication: EYE PAIN
     Dosage: 1 TAB Q 4-5 HRS PRN
     Route: 048
     Dates: start: 20100619, end: 20100620
  2. ERYTROMYCIN [Concomitant]
     Indication: EYE INJURY
     Dosage: 2 DROPS QHS, SINGLE
     Route: 047
     Dates: start: 20100619, end: 20100619

REACTIONS (5)
  - HYPERHIDROSIS [None]
  - VOMITING [None]
  - NAUSEA [None]
  - INTENTIONAL DRUG MISUSE [None]
  - DYSPEPSIA [None]
